FAERS Safety Report 6857127-4 (Version None)
Quarter: 2010Q3

REPORT INFORMATION
  Report Type: 
  Country: None (occurrence: None)
  Receive Date: 20100719
  Receipt Date: 20100708
  Transmission Date: 20110219
  Serious: Yes (Hospitalization)
  Sender: FDA-Public Use
  Company Number: B0665680A

PATIENT
  Age: 48 Year
  Sex: Female

DRUGS (3)
  1. PAROXETINE HCL [Suspect]
     Route: 065
     Dates: start: 19980101
  2. IBUPROFEN [Suspect]
     Indication: HEADACHE
     Dosage: 800MG PER DAY
     Route: 065
  3. ALPRAZOLAM [Concomitant]
     Dosage: .5MG PER DAY
     Route: 065

REACTIONS (21)
  - ALTERED STATE OF CONSCIOUSNESS [None]
  - APHASIA [None]
  - BRADYPHRENIA [None]
  - CEREBRAL HAEMATOMA [None]
  - COGNITIVE DISORDER [None]
  - CONFUSIONAL STATE [None]
  - DECREASED ACTIVITY [None]
  - DELIRIUM [None]
  - DISCOMFORT [None]
  - DISORIENTATION [None]
  - DRUG INTERACTION [None]
  - FATIGUE [None]
  - HAEMORRHAGE INTRACRANIAL [None]
  - HEADACHE [None]
  - MENINGEAL DISORDER [None]
  - NAUSEA [None]
  - OEDEMA [None]
  - PARAESTHESIA [None]
  - PSEUDOCYST [None]
  - SOMNOLENCE [None]
  - SUBARACHNOID HAEMORRHAGE [None]
